FAERS Safety Report 8027056-1 (Version None)
Quarter: 2011Q4

REPORT INFORMATION
  Report Type: 
  Country: None (occurrence: None)
  Receive Date: 20111130
  Receipt Date: 20110419
  Transmission Date: 20120403
  Serious: Yes (Hospitalization, Other)
  Sender: FDA-Public Use
  Company Number: US201104000164

PATIENT
  Sex: Male
  Weight: 133.8 kg

DRUGS (9)
  1. LISINOPRL (LISINOPRIL) [Concomitant]
  2. ACTOS [Concomitant]
  3. LANTUS [Concomitant]
  4. NOVOLOG [Concomitant]
  5. METFORMIN HCL [Concomitant]
  6. ACE INHIBITORS [Concomitant]
  7. DIURETICS [Concomitant]
  8. BYETTA [Suspect]
     Indication: TYPE 2 DIABETES MELLITUS
     Dosage: 10 UG, BID, SUBCUTANEOUS
     Route: 058
  9. HYDROCHLOROTHIAZIDE [Concomitant]

REACTIONS (3)
  - PANCREATITIS [None]
  - WEIGHT DECREASED [None]
  - OFF LABEL USE [None]
